FAERS Safety Report 11375989 (Version 1)
Quarter: 2015Q3

REPORT INFORMATION
  Report Type: Other
  Country: DE (occurrence: DE)
  Receive Date: 20150813
  Receipt Date: 20150813
  Transmission Date: 20151125
  Serious: Yes (Other)
  Sender: FDA-Public Use
  Company Number: DE-MYLANLABS-2015M1026336

PATIENT

DRUGS (2)
  1. ORFIRIL LONG RETARD [Suspect]
     Active Substance: VALPROIC ACID
     Indication: EPILEPSY
     Dosage: UNK (450 [MG/D ]/ 150-0-300)
     Route: 064
     Dates: start: 20140911, end: 20150621
  2. LAMOTRIGIN [Suspect]
     Active Substance: LAMOTRIGINE
     Indication: EPILEPSY
     Dosage: UNK (375 [MG/D ]/ 175-0-200)
     Route: 064
     Dates: start: 20140911, end: 20150621

REACTIONS (2)
  - Respiratory disorder neonatal [Recovered/Resolved]
  - Foetal exposure during pregnancy [Recovered/Resolved]

NARRATIVE: CASE EVENT DATE: 20150621
